FAERS Safety Report 25697441 (Version 1)
Quarter: 2025Q3

REPORT INFORMATION
  Report Type: Spontaneous
  Country: EU (occurrence: EU)
  Receive Date: 20250818
  Receipt Date: 20250818
  Transmission Date: 20251021
  Serious: Yes (Life-Threatening, Disabling)
  Sender: NOVO NORDISK
  Company Number: None

PATIENT
  Age: 25 Year
  Sex: Female
  Weight: 97 kg

DRUGS (2)
  1. WEGOVY [Suspect]
     Active Substance: SEMAGLUTIDE
     Indication: Overweight
     Route: 058
     Dates: start: 20241211, end: 20250228
  2. YASMIN [Concomitant]
     Active Substance: DROSPIRENONE\ETHINYL ESTRADIOL
     Indication: Contraception
     Dates: start: 2023, end: 20250326

REACTIONS (8)
  - Metastatic gastric cancer [Unknown]
  - Pain in extremity [Recovered/Resolved with Sequelae]
  - Food aversion [Unknown]
  - Parosmia [Unknown]
  - Abdominal pain [Recovered/Resolved with Sequelae]
  - Abdominal distension [Recovered/Resolved with Sequelae]
  - Vomiting [Recovered/Resolved with Sequelae]
  - Fatigue [Unknown]

NARRATIVE: CASE EVENT DATE: 20250105
